FAERS Safety Report 7470894-4 (Version None)
Quarter: 2011Q2

REPORT INFORMATION
  Report Type: 
  Country: None (occurrence: None)
  Receive Date: 20110506
  Receipt Date: 20110506
  Transmission Date: 20111010
  Serious: Yes (Other)
  Sender: FDA-Public Use
  Company Number: None

PATIENT
  Age: 85 Year
  Sex: Male
  Weight: 65.7716 kg

DRUGS (1)
  1. ARICEPT [Suspect]
     Indication: AMNESIA
     Dates: start: 20110212, end: 20110216

REACTIONS (1)
  - ABNORMAL BEHAVIOUR [None]
